FAERS Safety Report 8032262-6 (Version None)
Quarter: 2012Q1

REPORT INFORMATION
  Report Type: 
  Country: None (occurrence: None)
  Receive Date: 20120110
  Receipt Date: 20120103
  Transmission Date: 20120608
  Serious: No
  Sender: FDA-Public Use
  Company Number: US-BIOGENIDEC-2012BI000380

PATIENT
  Age: 70 Year
  Sex: Female

DRUGS (3)
  1. TYSABRI [Suspect]
     Indication: MULTIPLE SCLEROSIS
     Route: 042
     Dates: start: 19990101, end: 20000101
  2. AVONEX [Concomitant]
     Indication: MULTIPLE SCLEROSIS
     Route: 030
     Dates: start: 20101201
  3. TYSABRI [Suspect]
     Route: 042
     Dates: start: 20090401, end: 20100901

REACTIONS (3)
  - OROPHARYNGEAL PAIN [None]
  - DRY MOUTH [None]
  - URINARY TRACT DISORDER [None]
